FAERS Safety Report 6606556-2 (Version None)
Quarter: 2010Q1

REPORT INFORMATION
  Report Type: 
  Country: None (occurrence: None)
  Receive Date: 20100226
  Receipt Date: 20100215
  Transmission Date: 20100710
  Serious: Yes (Hospitalization)
  Sender: FDA-Public Use
  Company Number: NL-MEDIMMUNE-MEDI-0010302

PATIENT
  Sex: Male
  Weight: 7.58 kg

DRUGS (1)
  1. SYNAGIS [Suspect]
     Route: 030
     Dates: start: 20090903, end: 20091221

REACTIONS (2)
  - DYSURIA [None]
  - VIRAL INFECTION [None]
